FAERS Safety Report 9572460 (Version 1)
Quarter: 2013Q1

REPORT INFORMATION
  Report Type: Spontaneous
  Country: US (occurrence: None)
  Receive Date: 20120702
  Receipt Date: 20120702
  Transmission Date: 20140127
  Serious: Yes (Other)
  Sender: FDA-Public Use
  Company Number: 046141

PATIENT
  Sex: Female

DRUGS (2)
  1. LORTAB [Suspect]
  2. BUPRENORPHINE [Suspect]

REACTIONS (1)
  - Drug abuse [None]
